FAERS Safety Report 8831357 (Version 2)
Quarter: 2013Q1

REPORT INFORMATION
  Report Type: Spontaneous
  Country: CA (occurrence: CA)
  Receive Date: 20121009
  Receipt Date: 20130102
  Transmission Date: 20140127
  Serious: Yes (Disabling)
  Sender: FDA-Public Use
  Company Number: CA-SANOFI-AVENTIS-2012SA072021

PATIENT
  Age: 75 Year
  Sex: Female
  Weight: 63.5 kg

DRUGS (12)
  1. LANTUS SOLOSTAR [Suspect]
     Indication: TYPE 2 DIABETES MELLITUS
     Dosage: DOSE- 10 UNITS IN THE MORNING, 14 UNITS AT NIGHT
     Route: 058
  2. SOLOSTAR [Suspect]
     Indication: DEVICE THERAPY
     Route: 058
  3. NOVORAPID [Suspect]
     Indication: PRODUCT USED FOR UNKNOWN INDICATION
     Route: 058
  4. COUMADIN [Concomitant]
  5. METFORMIN [Concomitant]
  6. LEVOTHYROXINE SODIUM [Concomitant]
  7. THYROXIN [Concomitant]
  8. SIMVASTATIN [Concomitant]
  9. AMLODIPINE [Concomitant]
  10. HYZAAR [Concomitant]
  11. LOSARTAN [Concomitant]
  12. OMEPRAZOLE [Concomitant]

REACTIONS (9)
  - Transient ischaemic attack [Unknown]
  - Headache [Unknown]
  - Hypoaesthesia [Unknown]
  - Asthenia [Unknown]
  - Gait disturbance [Unknown]
  - Speech disorder [Unknown]
  - Dementia [Recovered/Resolved with Sequelae]
  - Blood glucose increased [Recovered/Resolved]
  - Aphasia [Unknown]
